FAERS Safety Report 19979212 (Version 1)
Quarter: 2021Q4

REPORT INFORMATION
  Report Type: Spontaneous
  Country: US (occurrence: US)
  Receive Date: 20211020
  Receipt Date: 20211020
  Transmission Date: 20220303
  Serious: No
  Sender: FDA-Public Use
  Company Number: USA--2021-US-000543

PATIENT
  Sex: Female

DRUGS (1)
  1. DORZOLAMIDE HYDROCHLORIDE\TIMOLOL MALEATE [Suspect]
     Active Substance: DORZOLAMIDE HYDROCHLORIDE\TIMOLOL MALEATE

REACTIONS (4)
  - Hypersensitivity [Unknown]
  - Ocular hyperaemia [Unknown]
  - Eye pain [Unknown]
  - Eye pruritus [Unknown]

NARRATIVE: CASE EVENT DATE: 20210801
